FAERS Safety Report 25953364 (Version 1)
Quarter: 2025Q4

REPORT INFORMATION
  Report Type: Report from Study
  Country: US (occurrence: US)
  Receive Date: 20251023
  Receipt Date: 20251023
  Transmission Date: 20260118
  Serious: Yes (Other)
  Sender: MALLINCKRODT
  Company Number: US-MALLINCKRODT-MNK202506419

PATIENT
  Sex: Female

DRUGS (3)
  1. CORTICOTROPIN [Suspect]
     Active Substance: CORTICOTROPIN
     Indication: Rheumatoid arthritis
     Dosage: 80 UNITS
     Dates: start: 20250731
  2. CORTICOTROPIN [Suspect]
     Active Substance: CORTICOTROPIN
     Indication: Rheumatoid arthritis
  3. SIMPONI [Concomitant]
     Active Substance: GOLIMUMAB
     Dosage: UNKNOWN

REACTIONS (9)
  - Surgery [Unknown]
  - Pain [Unknown]
  - Bowel movement irregularity [Unknown]
  - Frustration tolerance decreased [Unknown]
  - Hypertension [Unknown]
  - Headache [Unknown]
  - Fatigue [Unknown]
  - Swelling [Unknown]
  - Drug ineffective [Unknown]

NARRATIVE: CASE EVENT DATE: 20250101
